FAERS Safety Report 23190511 (Version 1)
Quarter: 2023Q4

REPORT INFORMATION
  Report Type: Spontaneous
  Country: US (occurrence: US)
  Receive Date: 20231116
  Receipt Date: 20231116
  Transmission Date: 20240110
  Serious: Yes (Other)
  Sender: FDA-Public Use
  Company Number: US-BEH-2022142949

PATIENT
  Age: 46 Year
  Sex: Male

DRUGS (3)
  1. IDELVION [Suspect]
     Active Substance: COAGULATION FACTOR IX RECOMBINANT HUMAN
     Indication: Factor IX deficiency
     Dosage: UNK
     Route: 042
     Dates: start: 2017
  2. IDELVION [Suspect]
     Active Substance: COAGULATION FACTOR IX RECOMBINANT HUMAN
     Indication: Factor IX deficiency
     Dosage: UNK
     Route: 042
     Dates: start: 2017
  3. BENEFIX [Concomitant]
     Active Substance: COAGULATION FACTOR IX RECOMBINANT HUMAN\ISOPROPYL ALCOHOL
     Dosage: UNK, PRN
     Route: 065
     Dates: start: 2002

REACTIONS (6)
  - Craniofacial fracture [Unknown]
  - Eye injury [Unknown]
  - Haemarthrosis [Unknown]
  - Vein rupture [Unknown]
  - Wrong technique in product usage process [Unknown]
  - Tendon injury [Recovered/Resolved]

NARRATIVE: CASE EVENT DATE: 20210401
